FAERS Safety Report 8224397-X (Version None)
Quarter: 2012Q1

REPORT INFORMATION
  Report Type: 
  Country: None (occurrence: None)
  Receive Date: 20120321
  Receipt Date: 20120313
  Transmission Date: 20120608
  Serious: Yes (Death)
  Sender: FDA-Public Use
  Company Number: JP-SANOFI-AVENTIS-2012SA017891

PATIENT
  Age: 59 Year
  Sex: Male

DRUGS (15)
  1. RABEPRAZOLE SODIUM [Concomitant]
     Route: 048
     Dates: start: 20101026
  2. INSULIN GLULISINE [Suspect]
     Indication: DIABETES MELLITUS
     Dosage: DOSE:2 UNIT(S)
     Route: 058
     Dates: start: 20100812, end: 20101005
  3. INSULIN GLULISINE [Suspect]
     Dosage: DOSE:4 UNIT(S)
     Route: 058
     Dates: start: 20101026, end: 20101108
  4. SULFASALAZINE [Concomitant]
     Route: 048
  5. PREDNISOLONE [Concomitant]
     Dosage: DOSE: 7.5 MG IN THE MORNING AND 2.5 MG IN THE NOON
     Route: 048
     Dates: start: 20101130, end: 20101220
  6. INSULIN GLULISINE [Suspect]
     Dosage: DOSE:4 UNIT(S)
     Route: 058
     Dates: start: 20101006, end: 20101025
  7. INSULIN GLULISINE [Suspect]
     Dosage: DOSE:8-8-4
     Route: 058
     Dates: start: 20101109, end: 20101227
  8. AMLODIPINE BESYLATE [Concomitant]
     Route: 048
  9. IMURAN [Concomitant]
     Route: 048
     Dates: start: 20101130
  10. TENORMIN [Concomitant]
     Route: 048
  11. ENALAPRIL MALEATE [Concomitant]
     Route: 048
  12. LANTUS [Concomitant]
     Indication: DIABETES MELLITUS
     Dosage: DOSE:18 UNIT(S)
     Route: 058
     Dates: start: 20101201
  13. INSULIN GLULISINE [Suspect]
     Dosage: DOSE:8-10-4
     Route: 058
     Dates: start: 20101228
  14. MIYA-BM [Concomitant]
     Route: 048
  15. CEREKINON [Concomitant]
     Route: 048

REACTIONS (1)
  - IRON DEFICIENCY ANAEMIA [None]
